FAERS Safety Report 19991356 (Version 1)
Quarter: 2021Q4

REPORT INFORMATION
  Report Type: Spontaneous
  Country: SE (occurrence: SE)
  Receive Date: 20211025
  Receipt Date: 20211025
  Transmission Date: 20220303
  Serious: Yes (Hospitalization)
  Sender: FDA-Public Use
  Company Number: None

PATIENT
  Age: 79 Year
  Sex: Female

DRUGS (12)
  1. CARBOPLATIN [Suspect]
     Active Substance: CARBOPLATIN
     Indication: Lung cancer metastatic
  2. GEMCITABINE [Suspect]
     Active Substance: GEMCITABINE
     Indication: Lung cancer metastatic
  3. PREGABALIN [Concomitant]
     Active Substance: PREGABALIN
     Dates: start: 20210726
  4. GABAPENTIN [Concomitant]
     Active Substance: GABAPENTIN
  5. ELIQUIS [Concomitant]
     Active Substance: APIXABAN
  6. OMEPRAZOLE [Concomitant]
     Active Substance: OMEPRAZOLE
  7. UNSPECIFIED INGREDIENT [Concomitant]
     Active Substance: UNSPECIFIED INGREDIENT
  8. PRIMPERAN [Concomitant]
     Active Substance: METOCLOPRAMIDE HYDROCHLORIDE
     Dosage: AS NEEDED
  9. BETAPRED [Concomitant]
     Active Substance: BETAMETHASONE SODIUM PHOSPHATE
  10. Calcichew-D3 Citron [Concomitant]
     Dosage: DOSE 1
  11. ACETAMINOPHEN [Concomitant]
     Active Substance: ACETAMINOPHEN
     Dates: start: 20210708
  12. Zoledronic Acid Fresenius Kabi [Concomitant]
     Dosage: ACCORDING TO SPECIAL PRESCRIPTION: 105 ML (4 MG) INFUSION EVERY 6 WEEKS
     Route: 042
     Dates: start: 20200717

REACTIONS (4)
  - Peripheral swelling [Unknown]
  - Erythema [Unknown]
  - Blister [Unknown]
  - Wound infection [Unknown]

NARRATIVE: CASE EVENT DATE: 20210921
